FAERS Safety Report 5481670-6 (Version None)
Quarter: 2007Q4

REPORT INFORMATION
  Report Type: 
  Country: None (occurrence: None)
  Receive Date: 20071010
  Receipt Date: 20071001
  Transmission Date: 20080405
  Serious: Yes (Death)
  Sender: FDA-Public Use
  Company Number: US-ELI_LILLY_AND_COMPANY-US200706002228

PATIENT
  Age: 62 Year
  Sex: Male
  Weight: 115.19 kg

DRUGS (1)
  1. HUMULIN R [Suspect]

REACTIONS (6)
  - CARDIOMEGALY [None]
  - DEATH [None]
  - EXCORIATION [None]
  - SKIN INJURY [None]
  - VASODILATATION [None]
  - WRONG DRUG ADMINISTERED [None]
